FAERS Safety Report 9851210 (Version 1)
Quarter: 2014Q1

REPORT INFORMATION
  Report Type: Spontaneous
  Country: ES (occurrence: ES)
  Receive Date: 20140128
  Receipt Date: 20140128
  Transmission Date: 20141002
  Serious: Yes (Other)
  Sender: FDA-Public Use
  Company Number: ES-GILEAD-2014-0092489

PATIENT
  Age: 79 Year
  Sex: Male
  Weight: 80 kg

DRUGS (6)
  1. EVIPLERA [Suspect]
     Indication: HIV INFECTION
     Dosage: 1 DF, QD
     Route: 048
     Dates: start: 20130910, end: 20131115
  2. GABAPENTINA [Concomitant]
     Dosage: UNK
     Route: 048
  3. ENALAPRIL + HIDROCLOROTIAZIDA [Concomitant]
     Indication: HYPERTENSION
     Dosage: UNK
     Route: 048
  4. ACFOL [Concomitant]
     Dosage: UNK
     Route: 048
  5. OMEPRAZOL                          /00661201/ [Concomitant]
     Dosage: 20 MG, QD
     Route: 048
  6. PALEXIA [Concomitant]
     Dosage: 100 MG, QD
     Route: 048

REACTIONS (4)
  - Erectile dysfunction [Recovered/Resolved]
  - Asthenia [Recovered/Resolved]
  - Insomnia [Recovered/Resolved]
  - Abdominal pain upper [Recovered/Resolved]
